FAERS Safety Report 13261005 (Version 2)
Quarter: 2017Q1

REPORT INFORMATION
  Report Type: Spontaneous
  Country: JP (occurrence: JP)
  Receive Date: 20170222
  Receipt Date: 20170317
  Transmission Date: 20170428
  Serious: Yes (Death, Hospitalization, Other)
  Sender: FDA-Public Use
  Company Number: JP-ELI_LILLY_AND_COMPANY-JP201702006884

PATIENT
  Age: 76 Year
  Sex: Male
  Weight: 56.6 kg

DRUGS (7)
  1. CYRAMZA [Suspect]
     Active Substance: RAMUCIRUMAB
     Indication: ADENOCARCINOMA GASTRIC
     Dosage: 8 MG/KG, OTHER
     Route: 042
     Dates: start: 20161220, end: 20170117
  2. NAIXAN                             /00256201/ [Suspect]
     Active Substance: NAPROXEN
     Indication: PAIN
     Dosage: UNK
     Route: 048
     Dates: start: 201611
  3. PACLITAXEL. [Suspect]
     Active Substance: PACLITAXEL
     Indication: ADENOCARCINOMA GASTRIC
     Dosage: 80 MG/M2, OTHER
     Route: 042
     Dates: start: 20161220, end: 20170117
  4. DECADRON [Suspect]
     Active Substance: DEXAMETHASONE
     Indication: NAUSEA
     Dosage: UNK
     Route: 048
     Dates: start: 201612
  5. TAKECAB [Concomitant]
     Active Substance: VONOPRAZAN FUMURATE
     Indication: HAEMORRHAGE PROPHYLAXIS
  6. TAKECAB [Concomitant]
     Active Substance: VONOPRAZAN FUMURATE
     Indication: PROPHYLAXIS AGAINST GASTROINTESTINAL ULCER
     Dosage: UNK
     Route: 048
     Dates: start: 201609
  7. DECADRON [Suspect]
     Active Substance: DEXAMETHASONE
     Indication: MALAISE

REACTIONS (9)
  - Melaena [Fatal]
  - Vomiting [Recovered/Resolved]
  - Rectal ulcer [Unknown]
  - Haemorrhoids [Unknown]
  - Gastrooesophageal reflux disease [Unknown]
  - Influenza [Unknown]
  - Urinary retention [Unknown]
  - Hypophagia [Unknown]
  - Gastric ulcer [Unknown]

NARRATIVE: CASE EVENT DATE: 201701
